FAERS Safety Report 17789749 (Version 1)
Quarter: 2020Q2

REPORT INFORMATION
  Report Type: Spontaneous
  Country: US (occurrence: US)
  Receive Date: 20200515
  Receipt Date: 20200515
  Transmission Date: 20200714
  Serious: No
  Sender: FDA-Public Use
  Company Number: US-AMGEN-USASP2020075879

PATIENT
  Age: 27 Year
  Sex: Male
  Weight: 73.5 kg

DRUGS (2)
  1. BLINCYTO [Suspect]
     Active Substance: BLINATUMOMAB
     Indication: ACUTE LYMPHOCYTIC LEUKAEMIA RECURRENT
     Dosage: UNK
     Route: 042
     Dates: start: 20200429
  2. BLINCYTO [Suspect]
     Active Substance: BLINATUMOMAB
     Dosage: 28MCG/DAY
     Route: 042
     Dates: start: 20200507

REACTIONS (1)
  - Accidental exposure to product [Unknown]

NARRATIVE: CASE EVENT DATE: 202005
